FAERS Safety Report 5354594-2 (Version None)
Quarter: 2007Q2

REPORT INFORMATION
  Report Type: 
  Country: None (occurrence: None)
  Receive Date: 20070611
  Receipt Date: 20070529
  Transmission Date: 20071010
  Serious: Yes (Hospitalization)
  Sender: FDA-Public Use
  Company Number: 2007SP010291

PATIENT
  Age: 29 Year
  Sex: Female

DRUGS (4)
  1. DIPROSALIC (BETAMETHASONE DIPROPIONATE/SALICYLIC ACID) (BETAMETHASONE [Suspect]
     Indication: DRUG USE FOR UNKNOWN INDICATION
     Dosage: TOP
     Route: 061
     Dates: start: 20070124, end: 20070221
  2. POTASSIUM PERMANGANATE [Concomitant]
  3. VENTOLIN [Concomitant]
  4. SERETIDE [Concomitant]

REACTIONS (5)
  - ABASIA [None]
  - DYSHIDROSIS [None]
  - SKIN NECROSIS [None]
  - SKIN ULCER [None]
  - SUPERINFECTION [None]
